FAERS Safety Report 10076168 (Version 1)
Quarter: 2014Q2

REPORT INFORMATION
  Report Type: Spontaneous
  Country: US (occurrence: None)
  Receive Date: 20140410
  Receipt Date: 20140410
  Transmission Date: 20141212
  Serious: Yes (Hospitalization)
  Sender: FDA-Public Use
  Company Number: UTC-046779

PATIENT
  Age: 66 Year
  Sex: Male

DRUGS (12)
  1. TYVASO (0.6 MILLIGRAM/MILLILITERS, AEROSOL FOR INHALATION) (TREPROSTINIL SODIUM) [Suspect]
     Indication: PULMONARY ARTERIAL HYPERTENSION
     Dosage: 216 UG/KG (54 UG/KG, 4 IN 1 D), INHALATION
     Dates: start: 20120124
  2. FOLIC ACID (FOLIC ACID) [Concomitant]
  3. FERROUS SULFATE (FERROUS SULFATE) [Concomitant]
  4. ATORVASTATIN CALCIUM (ATORVASTATIN CALCIUM) [Concomitant]
  5. DOXYCYCLINE (DOXYCYCLINE) [Concomitant]
  6. ALBUTEROL (SALBUTAMOL) [Concomitant]
  7. FORMOTEROL FUMARATE (FORMOTEROL FUMARATE) [Concomitant]
  8. SPIRIVA [Concomitant]
  9. SILDENAFIL CITRATE (SILDENAFIL CITRATE) [Concomitant]
  10. PREDNISONE (PREDNISONE) [Concomitant]
  11. LISINOPRIL (LISINOPRIL) [Concomitant]
  12. FINASTERIDE (FINASTERIDE) [Concomitant]

REACTIONS (2)
  - Respiratory failure [None]
  - Therapy cessation [None]
